FAERS Safety Report 5626919-1 (Version None)
Quarter: 2008Q1

REPORT INFORMATION
  Report Type: 
  Country: None (occurrence: None)
  Receive Date: 20080212
  Receipt Date: 20080130
  Transmission Date: 20080703
  Serious: Yes (Hospitalization)
  Sender: FDA-Public Use
  Company Number: 230023M08USA

PATIENT
  Age: 42 Year
  Sex: Male

DRUGS (5)
  1. REBIF [Suspect]
     Indication: MULTIPLE SCLEROSIS
     Dosage: 8.8 MCG, 3 IN 1 WEEKS, SUBCUTANEOUS
     Route: 058
     Dates: start: 20080121, end: 20080123
  2. COREG [Concomitant]
  3. LOPRESSOR [Concomitant]
  4. METFORMIN HCL [Concomitant]
  5. BACTRIC-DS (BACTRIM / 00086101/) [Concomitant]

REACTIONS (1)
  - ADVERSE DRUG REACTION [None]
